FAERS Safety Report 4816706-6 (Version None)
Quarter: 2005Q4

REPORT INFORMATION
  Report Type: 
  Country: None (occurrence: None)
  Receive Date: 20051101
  Receipt Date: 20051025
  Transmission Date: 20060501
  Serious: Yes (Other)
  Sender: FDA-Public Use
  Company Number: US-GLAXOSMITHKLINE-A0579516A

PATIENT

DRUGS (1)
  1. DEBROX DROPS [Suspect]
     Indication: DRUG USE FOR UNKNOWN INDICATION
     Dates: start: 20051024

REACTIONS (1)
  - DEAFNESS [None]
